FAERS Safety Report 8319550-0 (Version None)
Quarter: 2012Q2

REPORT INFORMATION
  Report Type: 
  Country: None (occurrence: None)
  Receive Date: 20120427
  Receipt Date: 20120418
  Transmission Date: 20120825
  Serious: Yes (Other)
  Sender: FDA-Public Use
  Company Number: PHHY2012GR033358

PATIENT
  Sex: Female

DRUGS (2)
  1. METHOTREXATE [Concomitant]
     Indication: JUVENILE ARTHRITIS
  2. ILARIS [Suspect]
     Indication: JUVENILE ARTHRITIS
     Dosage: 1X1 MONTHLY SC
     Route: 058
     Dates: start: 20110401

REACTIONS (1)
  - TUBERCULOSIS [None]
